FAERS Safety Report 15516210 (Version 1)
Quarter: 2018Q4

REPORT INFORMATION
  Report Type: Spontaneous
  Country: US (occurrence: US)
  Receive Date: 20181011
  Receipt Date: 20181011
  Transmission Date: 20190205
  Serious: Yes (Hospitalization)
  Sender: FDA-Public Use
  Company Number: None

PATIENT
  Age: 72 Year
  Sex: Male
  Weight: 105.2 kg

DRUGS (6)
  1. METOPROLOL. [Concomitant]
     Active Substance: METOPROLOL
  2. ZOCOR [Concomitant]
     Active Substance: SIMVASTATIN
  3. CARBOPLATIN. [Suspect]
     Active Substance: CARBOPLATIN
     Dates: end: 20180914
  4. ELIQUIS [Concomitant]
     Active Substance: APIXABAN
  5. TAXOL [Suspect]
     Active Substance: PACLITAXEL
     Dates: end: 20180914
  6. LISINOPRIL. [Concomitant]
     Active Substance: LISINOPRIL

REACTIONS (1)
  - Sinus node dysfunction [None]

NARRATIVE: CASE EVENT DATE: 20180915
